FAERS Safety Report 4911764-2 (Version None)
Quarter: 2006Q1

REPORT INFORMATION
  Report Type: 
  Country: None (occurrence: None)
  Receive Date: 20060213
  Receipt Date: 20060213
  Transmission Date: 20060701
  Serious: Yes (Hospitalization)
  Sender: FDA-Public Use
  Company Number: None

PATIENT
  Age: 59 Year
  Sex: Male
  Weight: 67.1324 kg

DRUGS (5)
  1. DIAZEPAM [Suspect]
     Indication: ANXIETY
     Dosage: 5 MG   TID    PO
     Route: 048
     Dates: start: 19970509, end: 20060125
  2. HYDROCODONE BITARTRATE AND ACETAMINOPHEN [Suspect]
     Indication: FIBROMYALGIA
     Dosage: 1-2 TABS   Q6HRS  PRN   PO
     Route: 048
     Dates: start: 19981020, end: 20060210
  3. HYDROCODONE BITARTRATE AND ACETAMINOPHEN [Suspect]
     Indication: RHEUMATOID ARTHRITIS
     Dosage: 1-2 TABS   Q6HRS  PRN   PO
     Route: 048
     Dates: start: 19981020, end: 20060210
  4. DIPHENHYDRAMINE [Concomitant]
  5. CODEINE / APAP [Concomitant]

REACTIONS (11)
  - ASTHENIA [None]
  - CONFUSIONAL STATE [None]
  - DECREASED APPETITE [None]
  - DIARRHOEA [None]
  - FALL [None]
  - GAIT DISTURBANCE [None]
  - HEADACHE [None]
  - LETHARGY [None]
  - MENTAL STATUS CHANGES [None]
  - NAUSEA [None]
  - SEDATION [None]
